FAERS Safety Report 15570446 (Version 3)
Quarter: 2018Q4

REPORT INFORMATION
  Report Type: Spontaneous
  Country: ES (occurrence: ES)
  Receive Date: 20181031
  Receipt Date: 20181109
  Transmission Date: 20190205
  Serious: Yes (Life-Threatening, Other)
  Sender: FDA-Public Use
  Company Number: ES-PFIZER INC-2018440675

PATIENT
  Age: 53 Year
  Sex: Male

DRUGS (6)
  1. DALBAVANCIN. [Suspect]
     Active Substance: DALBAVANCIN
     Indication: ENTEROCOCCAL INFECTION
  2. TEICOPLANIN [Suspect]
     Active Substance: TEICOPLANIN
     Indication: BACTERAEMIA
     Dosage: UNK
  3. TEICOPLANIN [Suspect]
     Active Substance: TEICOPLANIN
     Indication: ENTEROCOCCAL INFECTION
  4. DALBAVANCIN. [Suspect]
     Active Substance: DALBAVANCIN
     Indication: BACTERAEMIA
     Dosage: UNK
  5. VANCOMYCIN HCL [Suspect]
     Active Substance: VANCOMYCIN HYDROCHLORIDE
     Indication: BACTERAEMIA
     Dosage: UNK
  6. VANCOMYCIN HCL [Suspect]
     Active Substance: VANCOMYCIN HYDROCHLORIDE
     Indication: ENTEROCOCCAL INFECTION

REACTIONS (3)
  - Therapeutic product cross-reactivity [Recovered/Resolved]
  - Disease recurrence [Recovered/Resolved]
  - Neutropenia [Recovered/Resolved]
